FAERS Safety Report 12602921 (Version 5)
Quarter: 2016Q3

REPORT INFORMATION
  Report Type: Report from Study
  Country: US (occurrence: US)
  Receive Date: 20160728
  Receipt Date: 20160824
  Transmission Date: 20161109
  Serious: Yes (Hospitalization, Other)
  Sender: FDA-Public Use
  Company Number: US-GILEAD-2016-0224872

PATIENT
  Age: 47 Year
  Sex: Male

DRUGS (6)
  1. REVATIO [Concomitant]
     Active Substance: SILDENAFIL CITRATE
  2. TYVASO [Concomitant]
     Active Substance: TREPROSTINIL
  3. AMBRISENTAN [Suspect]
     Active Substance: AMBRISENTAN
     Dosage: 5 MG, QD
     Route: 065
     Dates: start: 20140519
  4. REMODULIN [Suspect]
     Active Substance: TREPROSTINIL
     Indication: PRODUCT USED FOR UNKNOWN INDICATION
     Dosage: UNK
     Route: 065
     Dates: start: 20160719, end: 20160727
  5. ELIQUIS [Concomitant]
     Active Substance: APIXABAN
  6. AMBRISENTAN [Suspect]
     Active Substance: AMBRISENTAN
     Indication: PRODUCT USED FOR UNKNOWN INDICATION
     Dosage: 10 MG, QD
     Route: 065
     Dates: start: 20140519

REACTIONS (20)
  - Chest discomfort [Unknown]
  - Abdominal distension [Not Recovered/Not Resolved]
  - Syncope [Unknown]
  - Pain [Not Recovered/Not Resolved]
  - Fatigue [Unknown]
  - Chest pain [Unknown]
  - Unevaluable event [Unknown]
  - Blood pressure decreased [Unknown]
  - Nausea [Unknown]
  - Dizziness [Unknown]
  - Infusion site erythema [Not Recovered/Not Resolved]
  - Infusion site warmth [Not Recovered/Not Resolved]
  - Dyspepsia [Recovered/Resolved]
  - Infusion site rash [Unknown]
  - Headache [Recovered/Resolved]
  - Infusion site oedema [Not Recovered/Not Resolved]
  - Infusion site swelling [Not Recovered/Not Resolved]
  - Device dislocation [Unknown]
  - Dyspnoea [Unknown]
  - Infusion site pain [Not Recovered/Not Resolved]

NARRATIVE: CASE EVENT DATE: 20160719
